FAERS Safety Report 8002416-3 (Version None)
Quarter: 2011Q4

REPORT INFORMATION
  Report Type: 
  Country: None (occurrence: None)
  Receive Date: 20111222
  Receipt Date: 20110912
  Transmission Date: 20120403
  Serious: No
  Sender: FDA-Public Use
  Company Number: US-GLAXOSMITHKLINE-A0944377A

PATIENT
  Age: 68 Year
  Sex: Male

DRUGS (2)
  1. NICOTINE [Suspect]
     Indication: DRUG WITHDRAWAL MAINTENANCE THERAPY
  2. NICORETTE [Suspect]
     Indication: EX-TOBACCO USER
     Dates: start: 20110301

REACTIONS (3)
  - DRUG ADMINISTRATION ERROR [None]
  - NICOTINE DEPENDENCE [None]
  - DRUG INEFFECTIVE [None]
